FAERS Safety Report 7682019-0 (Version None)
Quarter: 2011Q3

REPORT INFORMATION
  Report Type: 
  Country: None (occurrence: None)
  Receive Date: 20110809
  Receipt Date: 20110728
  Transmission Date: 20111222
  Serious: Yes (Death, Hospitalization)
  Sender: FDA-Public Use
  Company Number: 2011155518

PATIENT
  Age: 74 Year
  Sex: Male

DRUGS (6)
  1. FRAGMIN [Suspect]
     Indication: IMMOBILISATION PROLONGED
     Dosage: 0.4 ML, DAILY, SUBCUTANEOUS
     Route: 058
     Dates: start: 20110613, end: 20110701
  2. ARIXTRA (FONDARINUX SODIUM) [Suspect]
     Indication: IMMOBILISATION PROLONGED
     Dosage: 1250 IU, TOTAL, SUBCUTANEOUS
     Route: 057
     Dates: start: 20110701, end: 20110701
  3. TAZOCIN (PIPERACILLIN SODIUM, TAZOBACTAM SODIUM) [Concomitant]
  4. ASPIRIN [Concomitant]
  5. PLAVIX (C;P[ODPGREL SULFATE) [Concomitant]
  6. CARVEDILOL [Concomitant]

REACTIONS (1)
  - THROMBOCYTOPENIA [None]
